FAERS Safety Report 15857379 (Version 1)
Quarter: 2019Q1

REPORT INFORMATION
  Report Type: Spontaneous
  Country: US (occurrence: US)
  Receive Date: 20190123
  Receipt Date: 20190123
  Transmission Date: 20190417
  Serious: Yes (Hospitalization, Other)
  Sender: FDA-Public Use
  Company Number: US-SANIK-2019SA014210AA

PATIENT
  Age: 68 Year
  Sex: Male

DRUGS (1)
  1. CLOPIDOGREL BISULFATE. [Suspect]
     Active Substance: CLOPIDOGREL BISULFATE

REACTIONS (5)
  - Thrombocytopenia [Recovering/Resolving]
  - Haemorrhage [Recovering/Resolving]
  - Factor IX deficiency [Recovering/Resolving]
  - Coagulopathy [Recovered/Resolved]
  - Activated partial thromboplastin time prolonged [Recovering/Resolving]
